FAERS Safety Report 9827104 (Version 1)
Quarter: 2014Q1

REPORT INFORMATION
  Report Type: Spontaneous
  Country: US (occurrence: US)
  Receive Date: 20140117
  Receipt Date: 20140117
  Transmission Date: 20141002
  Serious: No
  Sender: FDA-Public Use
  Company Number: US-GLAXOSMITHKLINE-A1036147A

PATIENT
  Sex: Female

DRUGS (3)
  1. PROMACTA [Suspect]
     Indication: THROMBOCYTOPENIA
     Dosage: 50MG PER DAY
     Route: 048
  2. RIBAVIRIN [Concomitant]
  3. INTERFERON [Concomitant]

REACTIONS (1)
  - Bone pain [Recovering/Resolving]
